FAERS Safety Report 7125564-9 (Version None)
Quarter: 2010Q4

REPORT INFORMATION
  Report Type: 
  Country: None (occurrence: None)
  Receive Date: 20101129
  Receipt Date: 20091012
  Transmission Date: 20110411
  Serious: Yes (Death)
  Sender: FDA-Public Use
  Company Number: AU-ROCHE-741759

PATIENT
  Sex: Female

DRUGS (3)
  1. HERCEPTIN [Suspect]
     Route: 065
  2. HERCEPTIN [Suspect]
     Route: 065
  3. VINORELBINE [Suspect]
     Route: 065

REACTIONS (1)
  - DISEASE PROGRESSION [None]
